FAERS Safety Report 8850666 (Version 1)
Quarter: 2012Q4

REPORT INFORMATION
  Report Type: 
  Country: DK (occurrence: DK)
  Receive Date: 20121019
  Receipt Date: 20121019
  Transmission Date: 20130627
  Serious: Yes (Hospitalization)
  Sender: FDA-Public Use
  Company Number: DK-ASTRAZENECA-2012SE77809

PATIENT
  Sex: Female

DRUGS (2)
  1. CARBOCAIN [Suspect]
     Indication: LOCAL ANAESTHESIA
     Route: 065
     Dates: start: 20120918
  2. ADRENAL CORTEX INJECTION [Concomitant]
     Dates: start: 20120918

REACTIONS (8)
  - Disturbance in attention [Recovering/Resolving]
  - Anxiety [Unknown]
  - Eyelid disorder [Recovering/Resolving]
  - Hemiplegia [Recovering/Resolving]
  - Muscle spasms [Unknown]
  - Pain in extremity [Unknown]
  - Tremor [Recovering/Resolving]
  - Syncope [Unknown]
